FAERS Safety Report 7274201 (Version 6)
Quarter: 2012Q4

REPORT INFORMATION
  Report Type: Report from Study
  Country: US (occurrence: US)
  Receive Date: 20100209
  Receipt Date: 20120914
  Transmission Date: 20130627
  Serious: Yes (Death, Hospitalization)
  Sender: FDA-Public Use
  Company Number: US-ROCHE-684105

PATIENT
  Age: 70 Year
  Sex: Male
  Weight: 42.6 kg

DRUGS (12)
  1. PACLITAXEL [Suspect]
     Indication: NON-SMALL CELL LUNG CANCER
     Route: 042
  2. CARBOPLATIN [Suspect]
     Indication: NON-SMALL CELL LUNG CANCER
     Dosage: DOSE: 6 AUC
     Route: 042
  3. AVASTIN [Suspect]
     Indication: NON-SMALL CELL LUNG CANCER
     Route: 042
     Dates: start: 20090814, end: 20091124
  4. ZOFRAN [Concomitant]
     Indication: NAUSEA
     Route: 065
  5. ZOMETA [Concomitant]
     Indication: BONE PAIN
     Route: 065
  6. FERRLECIT [Concomitant]
     Indication: ANAEMIA
     Route: 065
  7. ZETIA [Concomitant]
     Indication: HYPERTENSION
     Route: 065
  8. CRESTOR [Concomitant]
     Indication: HYPERTENSION
     Dosage: DRUG REPORTED AS: CRESTOR (ROSUVASTATIN CALCIUM)
     Route: 065
  9. COREG [Concomitant]
     Indication: HYPERTENSION
     Route: 065
  10. METFORMIN [Concomitant]
     Indication: DIABETES MELLITUS
     Route: 065
  11. COLACE [Concomitant]
     Indication: LAXATIVE SUPPORTIVE CARE
     Route: 065
  12. IMODIUM [Concomitant]
     Indication: DIARRHOEA
     Route: 065

REACTIONS (10)
  - Lung neoplasm malignant [Fatal]
  - Anaemia [Recovered/Resolved]
  - Dehydration [Recovered/Resolved]
  - Renal failure acute [Recovered/Resolved]
  - Urinary tract infection bacterial [Recovered/Resolved]
  - General physical health deterioration [None]
  - Hypophagia [None]
  - Weight decreased [None]
  - Cachexia [None]
  - Klebsiella test positive [None]
